FAERS Safety Report 9694317 (Version 2)
Quarter: 2013Q4

REPORT INFORMATION
  Report Type: Spontaneous
  Country: US (occurrence: US)
  Receive Date: 20131118
  Receipt Date: 20131118
  Transmission Date: 20140711
  Serious: Yes (Other)
  Sender: FDA-Public Use
  Company Number: US-GILEAD-2007-0013385

PATIENT
  Age: 53 Year
  Sex: Male

DRUGS (14)
  1. LETAIRIS [Suspect]
     Indication: PULMONARY ARTERIAL HYPERTENSION
     Route: 048
     Dates: start: 20070809, end: 20070912
  2. LASIX [Concomitant]
     Route: 048
  3. VIREAD [Concomitant]
     Route: 048
  4. REVATIO [Concomitant]
     Route: 048
     Dates: start: 20070807
  5. REVATIO [Concomitant]
     Route: 048
  6. EPIVIR [Concomitant]
     Route: 048
  7. SUSTIVA [Concomitant]
     Route: 048
  8. WARFARIN [Concomitant]
     Indication: EMBOLISM
     Dosage: DOSE VARIES
  9. SPIRIVA [Concomitant]
     Route: 055
  10. ADVAIR [Concomitant]
     Route: 055
  11. SINGULAIR [Concomitant]
     Indication: RHINITIS ALLERGIC
  12. METFORMIN [Concomitant]
     Route: 048
  13. FLOMAX [Concomitant]
     Indication: BENIGN PROSTATIC HYPERPLASIA
  14. WELLBUTRIN [Concomitant]

REACTIONS (1)
  - Hepatic enzyme increased [Recovering/Resolving]
